FAERS Safety Report 10039642 (Version 1)
Quarter: 2014Q1

REPORT INFORMATION
  Report Type: Spontaneous
  Country: US (occurrence: US)
  Receive Date: 20140326
  Receipt Date: 20140326
  Transmission Date: 20141002
  Serious: Yes (Other)
  Sender: FDA-Public Use
  Company Number: US-JNJFOC-20140308051

PATIENT
  Sex: 0

DRUGS (5)
  1. DOXORUBICIN HYDROCHLORIDE [Suspect]
     Indication: TRANSITIONAL CELL CARCINOMA
     Dosage: DAILY ON DAY 1 THROUGH 3
     Route: 042
  2. MESNA [Suspect]
     Indication: TRANSITIONAL CELL CARCINOMA
     Dosage: INFUSED AT HOURS 0, 4, 8 AND 12 DAILY ON DAYS 1 THROUGH 4
     Route: 065
  3. IFOSFAMIDE [Suspect]
     Indication: TRANSITIONAL CELL CARCINOMA
     Dosage: 3 HOURS DAILY ON DAYS 1 THROUGH 4
     Route: 065
  4. ETOPOSIDE [Suspect]
     Indication: TRANSITIONAL CELL CARCINOMA
     Dosage: 2 HOURS DAILY ON DAYS 1 THROUGH 5
     Route: 065
  5. CISPLATIN [Suspect]
     Indication: TRANSITIONAL CELL CARCINOMA
     Route: 065

REACTIONS (14)
  - Neutrophil count decreased [Unknown]
  - Nausea [Unknown]
  - Infection [Unknown]
  - Device related infection [Unknown]
  - Pulmonary embolism [Unknown]
  - Packed red blood cell transfusion [Unknown]
  - Febrile neutropenia [Unknown]
  - Platelet transfusion [Unknown]
  - Fatigue [Unknown]
  - Hyperglycaemia [Unknown]
  - Renal failure [Unknown]
  - Neurotoxicity [Unknown]
  - Vomiting [Unknown]
  - Off label use [Unknown]
